FAERS Safety Report 13774767 (Version 1)
Quarter: 2017Q3

REPORT INFORMATION
  Report Type: Spontaneous
  Country: US (occurrence: US)
  Receive Date: 20170720
  Receipt Date: 20170720
  Transmission Date: 20171127
  Serious: No
  Sender: FDA-Public Use
  Company Number: None

PATIENT
  Age: 29 Year
  Sex: Female

DRUGS (1)
  1. COSENTYX [Suspect]
     Active Substance: SECUKINUMAB
     Indication: PRODUCT USED FOR UNKNOWN INDICATION
     Dosage: 2X150MG=300MG EVERY 4 WEEKS SUB-Q
     Route: 058
     Dates: start: 20160930

REACTIONS (1)
  - Vertigo [None]

NARRATIVE: CASE EVENT DATE: 20170701
